FAERS Safety Report 4622224-0 (Version None)
Quarter: 2005Q1

REPORT INFORMATION
  Report Type: 
  Country: None (occurrence: None)
  Receive Date: 20050330
  Receipt Date: 20050318
  Transmission Date: 20050727
  Serious: Yes (Other)
  Sender: FDA-Public Use
  Company Number: DE-JNJFOC-20050305068

PATIENT
  Age: 65 Year
  Sex: Female
  Weight: 60 kg

DRUGS (3)
  1. INFLIXIMAB [Suspect]
     Dosage: 16TH INFUSION ADMINISTERED
     Route: 042
  2. INFLIXIMAB [Suspect]
     Dosage: 15TH INFUSIONS ADMINISTERED
     Route: 042
  3. INFLIXIMAB [Suspect]
     Indication: RHEUMATOID ARTHRITIS
     Dosage: 14 INFUSIONS
     Route: 042

REACTIONS (1)
  - LUNG NEOPLASM MALIGNANT [None]
